FAERS Safety Report 4878484-4 (Version None)
Quarter: 2006Q1

REPORT INFORMATION
  Report Type: 
  Country: None (occurrence: None)
  Receive Date: 20060110
  Receipt Date: 20060104
  Transmission Date: 20060701
  Serious: Yes (Life-Threatening)
  Sender: FDA-Public Use
  Company Number: 06H-163-0304317-00

PATIENT
  Age: 36 Year
  Sex: Male

DRUGS (3)
  1. VANCOMYCIN HCL [Suspect]
     Indication: NAUSEA
     Dosage: 1.2 GM, ONCE, INTRAVENOUS
     Route: 042
     Dates: start: 20051228, end: 20051228
  2. VANCOMYCIN HCL [Suspect]
     Indication: PYREXIA
     Dosage: 1.2 GM, ONCE, INTRAVENOUS
     Route: 042
     Dates: start: 20051228, end: 20051228
  3. VANCOMYCIN HCL [Suspect]
     Indication: VOMITING
     Dosage: 1.2 GM, ONCE, INTRAVENOUS
     Route: 042
     Dates: start: 20051228, end: 20051228

REACTIONS (1)
  - DYSPNOEA [None]
